FAERS Safety Report 10562203 (Version 1)
Quarter: 2014Q4

REPORT INFORMATION
  Report Type: Spontaneous
  Country: JP (occurrence: None)
  Receive Date: 20141031
  Receipt Date: 20141031
  Transmission Date: 20150529
  Serious: Yes (Hospitalization)
  Sender: FDA-Public Use
  Company Number: FK201404496

PATIENT
  Age: 61 Year
  Sex: Male

DRUGS (4)
  1. TRICHLORMETHIAZIDE [Suspect]
     Active Substance: TRICHLORMETHIAZIDE
     Indication: CARDIAC FAILURE CONGESTIVE
     Dosage: 1 IN 1 D
  2. FUROSEMIDE. [Suspect]
     Active Substance: FUROSEMIDE
     Indication: CARDIAC FAILURE CONGESTIVE
     Dosage: 1 IN 1 D
  3. METHYLDIGOXIN [Suspect]
     Active Substance: METILDIGOXIN
     Indication: CARDIAC FAILURE CONGESTIVE
     Dosage: 1 IN 1 D
  4. LOSARTAN [Suspect]
     Active Substance: LOSARTAN
     Indication: CARDIAC FAILURE CONGESTIVE
     Dosage: 1 IN 1 D

REACTIONS (4)
  - Vascular resistance systemic decreased [None]
  - Cardiac failure high output [None]
  - Vitamin B1 deficiency [None]
  - Shoshin beriberi [None]
